FAERS Safety Report 11744504 (Version 1)
Quarter: 2015Q4

REPORT INFORMATION
  Report Type: Report from Study
  Country: FR (occurrence: FR)
  Receive Date: 20151116
  Receipt Date: 20151116
  Transmission Date: 20160304
  Serious: Yes (Hospitalization)
  Sender: FDA-Public Use
  Company Number: FR-JAZZ-JPI-P-019827

PATIENT
  Age: 64 Year
  Sex: Male
  Weight: 84 kg

DRUGS (11)
  1. XYREM [Suspect]
     Active Substance: SODIUM OXYBATE
     Dosage: 4.5 G, BID
     Route: 048
     Dates: start: 20111017, end: 20120124
  2. XYREM [Suspect]
     Active Substance: SODIUM OXYBATE
     Dosage: 3.75 G, BID
     Route: 048
     Dates: start: 20120128, end: 20120130
  3. XYREM [Suspect]
     Active Substance: SODIUM OXYBATE
     Indication: NARCOLEPSY
     Dosage: 2.25 G, QD
     Route: 048
     Dates: start: 20110608, end: 20110618
  4. XYREM [Suspect]
     Active Substance: SODIUM OXYBATE
     Dosage: 3.75 G, BID
     Route: 048
     Dates: start: 20110901, end: 20111016
  5. XYREM [Suspect]
     Active Substance: SODIUM OXYBATE
     Dosage: 4.5 G, BID
     Route: 048
     Dates: start: 20120131
  6. MENTHOL W/METHYL SALICYLATE [Concomitant]
     Active Substance: MENTHOL\METHYL SALICYLATE
     Indication: PAIN
     Dates: start: 20120125, end: 20120130
  7. XYREM [Suspect]
     Active Substance: SODIUM OXYBATE
     Dosage: 3 G, BID
     Route: 048
     Dates: start: 20110630, end: 20110831
  8. MODAFINIL. [Concomitant]
     Active Substance: MODAFINIL
     Indication: NARCOLEPSY
     Dosage: UNK UNKNOWN, SINGLE
     Route: 048
  9. MODAFINIL. [Concomitant]
     Active Substance: MODAFINIL
     Indication: CATAPLEXY
  10. XYREM [Suspect]
     Active Substance: SODIUM OXYBATE
     Dosage: 2.25 G, BID
     Route: 048
     Dates: start: 20110619, end: 20110629
  11. XATRAL [Concomitant]
     Active Substance: ALFUZOSIN
     Indication: PRODUCT USED FOR UNKNOWN INDICATION
     Dosage: UNK UNKNOWN, SINGLE
     Dates: start: 2012

REACTIONS (9)
  - Rotator cuff syndrome [Recovered/Resolved]
  - Pruritus [Unknown]
  - Dysuria [Not Recovered/Not Resolved]
  - Gastrointestinal disorder [Unknown]
  - Depression [Not Recovered/Not Resolved]
  - Weight decreased [Not Recovered/Not Resolved]
  - Treatment noncompliance [Unknown]
  - Hyperhidrosis [Not Recovered/Not Resolved]
  - Decreased appetite [Not Recovered/Not Resolved]

NARRATIVE: CASE EVENT DATE: 20120126
